FAERS Safety Report 24929117 (Version 1)
Quarter: 2025Q1

REPORT INFORMATION
  Report Type: Spontaneous
  Country: US (occurrence: US)
  Receive Date: 20250205
  Receipt Date: 20250205
  Transmission Date: 20250408
  Serious: Yes (Disabling, Other)
  Sender: PURDUE
  Company Number: US-PURDUE-USA-2025-0315112

PATIENT

DRUGS (1)
  1. HYDROCODONE BITARTRATE [Suspect]
     Active Substance: HYDROCODONE BITARTRATE
     Indication: Product used for unknown indication
     Route: 065

REACTIONS (2)
  - Drug dependence [Unknown]
  - Impaired quality of life [Unknown]
